FAERS Safety Report 15587912 (Version 6)
Quarter: 2019Q4

REPORT INFORMATION
  Report Type: Spontaneous
  Country: US (occurrence: US)
  Receive Date: 20181105
  Receipt Date: 20191210
  Transmission Date: 20200122
  Serious: Yes (Hospitalization)
  Sender: FDA-Public Use
  Company Number: US-PFIZER INC-2018442278

PATIENT
  Age: 56 Year
  Sex: Female

DRUGS (7)
  1. ZANAFLEX [Concomitant]
     Active Substance: TIZANIDINE HYDROCHLORIDE
     Indication: BACK PAIN
     Dosage: 2 MG, 2X/DAY
     Route: 048
     Dates: start: 201809
  2. LYRICA [Suspect]
     Active Substance: PREGABALIN
     Indication: NEURALGIA
     Dosage: 3 DF, 2 TO 3 TIMES DAILY
  3. NAPROSYN E [Concomitant]
     Active Substance: NAPROXEN
     Indication: ARTHRITIS
     Dosage: 500 MG, 2X/DAY
     Route: 048
  4. LYRICA [Suspect]
     Active Substance: PREGABALIN
     Indication: NEUROPATHY PERIPHERAL
     Dosage: 1 DF, 2 TO 3 TIMES DAILY
  5. LYRICA [Suspect]
     Active Substance: PREGABALIN
     Indication: PAIN
  6. LYRICA [Suspect]
     Active Substance: PREGABALIN
     Indication: FIBROMYALGIA
  7. TRAMADOL. [Concomitant]
     Active Substance: TRAMADOL
     Indication: BACK PAIN
     Dosage: 50 MG, 2X/DAY (EVERY 12 HOURS)
     Route: 048
     Dates: start: 201809

REACTIONS (3)
  - Product prescribing error [Unknown]
  - Neuropathy peripheral [Unknown]
  - Prescribed overdose [Unknown]
